FAERS Safety Report 9187224 (Version 1)
Quarter: 2013Q1

REPORT INFORMATION
  Report Type: Report from Study
  Country: GR (occurrence: GR)
  Receive Date: 20130322
  Receipt Date: 20130322
  Transmission Date: 20140127
  Serious: Yes (Hospitalization)
  Sender: FDA-Public Use
  Company Number: PHHY2013GR026993

PATIENT
  Age: 64 Year
  Sex: Male
  Weight: 92 kg

DRUGS (3)
  1. ERL 080A [Suspect]
     Indication: IMMUNOSUPPRESSION
     Dosage: 720 MG, BID
     Route: 048
     Dates: start: 20111006
  2. PREZOLON [Concomitant]
     Indication: IMMUNOSUPPRESSION
     Dosage: 5 MG, UNK
     Dates: start: 20111006
  3. NEORAL [Concomitant]
     Indication: IMMUNOSUPPRESSION
     Dosage: 100 MG, BID
     Dates: start: 20111007

REACTIONS (1)
  - Cholelithiasis [Recovered/Resolved]
